FAERS Safety Report 10371986 (Version 3)
Quarter: 2014Q4

REPORT INFORMATION
  Report Type: Spontaneous
  Country: US (occurrence: US)
  Receive Date: 20140808
  Receipt Date: 20141211
  Transmission Date: 20150528
  Serious: Yes (Hospitalization, Disabling, Other)
  Sender: FDA-Public Use
  Company Number: US-BAYER-2014-114802

PATIENT
  Age: 23 Year
  Sex: Female
  Weight: 120.18 kg

DRUGS (3)
  1. MIRENA [Suspect]
     Active Substance: LEVONORGESTREL
     Indication: CONTRACEPTION
     Dosage: 20 MCG/24HR, CONT
     Route: 015
     Dates: start: 20101006
  2. LABETALOL [Concomitant]
     Active Substance: LABETALOL\LABETALOL HYDROCHLORIDE
     Indication: HYPERTENSION
  3. MIRENA [Suspect]
     Active Substance: LEVONORGESTREL
     Indication: CONTRACEPTION
     Dosage: 20 MCG/24HR, CONT
     Route: 015

REACTIONS (17)
  - Uterine perforation [None]
  - Post procedural haemorrhage [None]
  - Device dislocation [None]
  - Medical device pain [None]
  - Post procedural discomfort [None]
  - Infection [None]
  - Injury [None]
  - Metrorrhagia [None]
  - Pelvic pain [None]
  - Device difficult to use [None]
  - Pregnancy with contraceptive device [None]
  - Depression [None]
  - Anxiety [None]
  - Abdominal pain lower [None]
  - Hysterectomy [None]
  - Drug ineffective [None]
  - Gestational hypertension [None]

NARRATIVE: CASE EVENT DATE: 200602
